FAERS Safety Report 20915283 (Version 1)
Quarter: 2022Q2

REPORT INFORMATION
  Report Type: Spontaneous
  Country: US (occurrence: US)
  Receive Date: 20220604
  Receipt Date: 20220604
  Transmission Date: 20220721
  Serious: No
  Sender: FDA-Public Use
  Company Number: US-SA-SAC20220527000075

PATIENT
  Age: 60 Year
  Sex: Male

DRUGS (11)
  1. DUPIXENT [Suspect]
     Active Substance: DUPILUMAB
     Indication: Nasal polyps
     Dosage: 300 MG, QOW
     Route: 058
     Dates: start: 20220126, end: 2022
  2. NUCALA [Concomitant]
     Active Substance: MEPOLIZUMAB
  3. ASPIRIN [Concomitant]
     Active Substance: ASPIRIN
     Dosage: UNK
  4. ATIVAN [Concomitant]
     Active Substance: LORAZEPAM
     Dosage: UNK
  5. CLOPIDOGREL [Concomitant]
     Active Substance: CLOPIDOGREL BISULFATE
     Dosage: UNK
  6. LASIX [Concomitant]
     Active Substance: FUROSEMIDE
     Dosage: UNK
  7. METHERGINE [Concomitant]
     Active Substance: METHYLERGONOVINE MALEATE
     Dosage: UNK
  8. MOTRIN [Concomitant]
     Active Substance: IBUPROFEN
     Dosage: UNK
  9. NEURONTIN [Concomitant]
     Active Substance: GABAPENTIN
     Dosage: UNK
  10. PROCARDIA [Concomitant]
     Active Substance: NIFEDIPINE
  11. VITAMINS NOS [Concomitant]
     Active Substance: VITAMINS

REACTIONS (2)
  - Product use in unapproved indication [Unknown]
  - Drug ineffective [Unknown]

NARRATIVE: CASE EVENT DATE: 20220101
